FAERS Safety Report 14468131 (Version 3)
Quarter: 2018Q3

REPORT INFORMATION
  Report Type: Report from Study
  Country: DE (occurrence: DE)
  Receive Date: 20180131
  Receipt Date: 20180828
  Transmission Date: 20181010
  Serious: Yes (Hospitalization, Other)
  Sender: FDA-Public Use
  Company Number: DE-TEVA-2018-DE-849881

PATIENT
  Age: 63 Year
  Sex: Male
  Weight: 143.4 kg

DRUGS (12)
  1. BLINDED ALBIGLUTIDE [Suspect]
     Active Substance: ALBIGLUTIDE
     Dosage: UNK UNK, WE
     Route: 058
     Dates: start: 20151214, end: 20160128
  2. BLINDED PLACEBO [Suspect]
     Active Substance: INVESTIGATIONAL PRODUCT
     Indication: TYPE 2 DIABETES MELLITUS
     Dosage: UNK UNK, WE
     Route: 058
     Dates: start: 20160527
  3. BLINDED PLACEBO [Suspect]
     Active Substance: INVESTIGATIONAL PRODUCT
     Dosage: UNK UNK, WE
     Route: 058
     Dates: start: 20151214, end: 20160128
  4. BLINDED PLACEBO [Suspect]
     Active Substance: INVESTIGATIONAL PRODUCT
     Dosage: UNK UNK, WE
     Route: 058
     Dates: start: 20160210, end: 20160505
  5. BLINDED ALBIGLUTIDE [Suspect]
     Active Substance: ALBIGLUTIDE
     Dosage: UNK UNK, WE
     Route: 058
     Dates: start: 20160210, end: 20160505
  6. CLINDAMYCIN. [Suspect]
     Active Substance: CLINDAMYCIN
     Indication: SEPSIS
     Route: 042
     Dates: start: 20160512, end: 20160524
  7. BLINDED ALBIGLUTIDE [Suspect]
     Active Substance: ALBIGLUTIDE
     Indication: TYPE 2 DIABETES MELLITUS
     Dosage: UNK UNK, WE
     Route: 058
     Dates: start: 20150806, end: 20151119
  8. PIPERACILLIN AND TAZOBACTAM [Suspect]
     Active Substance: PIPERACILLIN SODIUM\TAZOBACTAM SODIUM
     Indication: SEPSIS
     Route: 042
     Dates: start: 20160512, end: 20160524
  9. HYDROMORPHONE [Suspect]
     Active Substance: HYDROMORPHONE
     Indication: ERYSIPELAS
     Dosage: 4 MILLIGRAM DAILY;
     Route: 048
     Dates: start: 20160512, end: 20160527
  10. CIPROFLOXACIN. [Suspect]
     Active Substance: CIPROFLOXACIN
     Indication: SEPSIS
     Dosage: 1000 MILLIGRAM DAILY;
     Route: 048
     Dates: start: 20160525, end: 20160620
  11. BLINDED PLACEBO [Suspect]
     Active Substance: INVESTIGATIONAL PRODUCT
     Dosage: UNK UNK, WE
     Route: 058
     Dates: start: 20150806, end: 20151119
  12. BLINDED ALBIGLUTIDE [Suspect]
     Active Substance: ALBIGLUTIDE
     Dosage: UNK UNK, WE
     Route: 058
     Dates: start: 20160527

REACTIONS (1)
  - Erysipelas [Recovered/Resolved]

NARRATIVE: CASE EVENT DATE: 20160512
